FAERS Safety Report 6563866-5 (Version None)
Quarter: 2010Q1

REPORT INFORMATION
  Report Type: 
  Country: None (occurrence: None)
  Receive Date: 20100130
  Receipt Date: 20091228
  Transmission Date: 20100710
  Serious: No
  Sender: FDA-Public Use
  Company Number: US-ABBOTT-09P-163-0616963-00

PATIENT
  Sex: Female
  Weight: 97.61 kg

DRUGS (3)
  1. HUMIRA [Suspect]
     Indication: RHEUMATOID ARTHRITIS
     Dosage: STRENGTH: 40 MILLIEQUIVALENTS
     Route: 058
     Dates: start: 20091001, end: 20091101
  2. METHOTREXATE [Concomitant]
     Indication: RHEUMATOID ARTHRITIS
     Dosage: 6, STRENGTH: 2.5 MG
     Route: 048
  3. MEDROL [Concomitant]
     Indication: RHEUMATOID ARTHRITIS
     Dosage: 1 1/2 QD, STRENGTH: 4 MG
     Route: 048

REACTIONS (3)
  - DIARRHOEA [None]
  - HYPOAESTHESIA [None]
  - PARAESTHESIA [None]
